FAERS Safety Report 6313848-3 (Version None)
Quarter: 2009Q3

REPORT INFORMATION
  Report Type: 
  Country: None (occurrence: None)
  Receive Date: 20090814
  Receipt Date: 20090810
  Transmission Date: 20100115
  Serious: Yes (Other)
  Sender: FDA-Public Use
  Company Number: 09GB003024

PATIENT
  Age: 44 Year
  Sex: Male
  Weight: 62 kg

DRUGS (5)
  1. LOPERAMIDE [Suspect]
     Dosage: 2 MG, PRN, ORAL
     Route: 048
  2. ZONEGRAN [Suspect]
     Indication: EPILEPSY
     Dosage: 25 MG, QD, ORAL
     Route: 048
     Dates: start: 20090514, end: 20090614
  3. KEPPRA [Suspect]
     Indication: DRUG USE FOR UNKNOWN INDICATION
     Dosage: 625 MG, QD, ORAL
     Route: 048
     Dates: start: 19980101
  4. TEGRETOL [Suspect]
     Indication: DRUG USE FOR UNKNOWN INDICATION
     Dosage: 1000 MG, QD, ORAL
     Route: 048
     Dates: start: 19940101
  5. CHINESE MEDICATION [Concomitant]

REACTIONS (5)
  - ANXIETY [None]
  - DIARRHOEA [None]
  - DRUG INTERACTION [None]
  - GRAND MAL CONVULSION [None]
  - PARAESTHESIA [None]
